FAERS Safety Report 10144086 (Version 1)
Quarter: 2014Q2

REPORT INFORMATION
  Report Type: Report from Study
  Country: US (occurrence: US)
  Receive Date: 20140430
  Receipt Date: 20140430
  Transmission Date: 20141212
  Serious: Yes (Hospitalization, Other)
  Sender: FDA-Public Use
  Company Number: US-ABBVIE-14P-163-1228148-00

PATIENT
  Sex: Male
  Weight: 77.18 kg

DRUGS (3)
  1. HUMIRA [Suspect]
     Indication: PSORIASIS
     Route: 058
     Dates: start: 2013, end: 20140119
  2. NORVASC [Concomitant]
     Indication: HYPERTENSION
  3. VULTARIN [Concomitant]
     Indication: ARTHRITIS

REACTIONS (4)
  - Gait disturbance [Recovered/Resolved]
  - Arthritis [Not Recovered/Not Resolved]
  - Arthralgia [Recovered/Resolved]
  - Knee arthroplasty [Unknown]
